FAERS Safety Report 20663917 (Version 3)
Quarter: 2022Q2

REPORT INFORMATION
  Report Type: Report from Study
  Country: FR (occurrence: FR)
  Receive Date: 20220401
  Receipt Date: 20220421
  Transmission Date: 20220721
  Serious: Yes (Life-Threatening, Hospitalization)
  Sender: FDA-Public Use
  Company Number: FR-SERVIER-S22003334

PATIENT

DRUGS (9)
  1. PEGASPARGASE [Suspect]
     Active Substance: PEGASPARGASE
     Indication: Acute lymphocytic leukaemia
     Dosage: 1925 IU, ON D4
     Route: 042
     Dates: start: 20220307
  2. VINCRISTINE [Suspect]
     Active Substance: VINCRISTINE
     Indication: Acute lymphocytic leukaemia
     Dosage: 2 MG, ON D1, 8 AND 15
     Route: 042
     Dates: start: 20220304, end: 20220310
  3. DOXORUBICIN [Suspect]
     Active Substance: DOXORUBICIN
     Indication: Acute lymphocytic leukaemia
     Dosage: 32 MG, D1, D8, AND D15
     Route: 042
     Dates: start: 20220304, end: 20220318
  4. DEXAMETHASONE [Suspect]
     Active Substance: DEXAMETHASONE
     Indication: Acute lymphocytic leukaemia
     Dosage: 15 MG, ON D1 TO 20
     Route: 048
     Dates: start: 20220304, end: 20220324
  5. METHOTREXATE [Suspect]
     Active Substance: METHOTREXATE
     Indication: Acute lymphocytic leukaemia
     Dosage: 15 MG, ON D4
     Route: 037
     Dates: start: 20220307
  6. DAUNORUBICIN [Concomitant]
     Active Substance: DAUNORUBICIN
     Indication: Acute lymphocytic leukaemia
     Dosage: 32 MG, FROM D1, 8 AND 15
     Route: 042
     Dates: start: 20220304, end: 20220318
  7. SULFAMETHOXAZOLE\TRIMETHOPRIM [Concomitant]
     Active Substance: SULFAMETHOXAZOLE\TRIMETHOPRIM
     Indication: Product used for unknown indication
     Dosage: 800 MG
     Route: 048
  8. LANSOPRAZOLE [Concomitant]
     Active Substance: LANSOPRAZOLE
     Indication: Product used for unknown indication
     Dosage: 30 MG, ON D1 TO 28
     Route: 048
  9. Calcidose [Concomitant]
     Indication: Product used for unknown indication
     Dosage: 500 MG, ON D1 TO 28
     Route: 048

REACTIONS (5)
  - Anal inflammation [Recovering/Resolving]
  - Mucosal inflammation [Recovering/Resolving]
  - Pancreatitis necrotising [Not Recovered/Not Resolved]
  - Diabetes mellitus [Recovered/Resolved]
  - Adrenal insufficiency [Recovered/Resolved]

NARRATIVE: CASE EVENT DATE: 20220324
